FAERS Safety Report 5146868-5 (Version None)
Quarter: 2006Q4

REPORT INFORMATION
  Report Type: 
  Country: None (occurrence: None)
  Receive Date: 20061109
  Receipt Date: 20060906
  Transmission Date: 20070319
  Serious: Yes (Hospitalization)
  Sender: FDA-Public Use
  Company Number: FR-GLAXOSMITHKLINE-B0437445A

PATIENT
  Age: 45 Year
  Sex: Female
  Weight: 86 kg

DRUGS (3)
  1. AVANDAMET [Suspect]
     Dosage: 2TAB PER DAY
     Route: 048
     Dates: start: 20060319, end: 20060901
  2. DIAMICRON [Concomitant]
     Dosage: 120MG PER DAY
     Route: 048
     Dates: start: 20031201
  3. TAHOR [Concomitant]
     Dosage: 10MG PER DAY
     Route: 048

REACTIONS (4)
  - MACULAR OEDEMA [None]
  - OEDEMA PERIPHERAL [None]
  - VISUAL DISTURBANCE [None]
  - WEIGHT INCREASED [None]
